FAERS Safety Report 9842661 (Version 1)
Quarter: 2014Q1

REPORT INFORMATION
  Report Type: Spontaneous
  Country: US (occurrence: US)
  Receive Date: 20140124
  Receipt Date: 20140124
  Transmission Date: 20141002
  Serious: No
  Sender: FDA-Public Use
  Company Number: US-009507513-1401USA007800

PATIENT
  Sex: Male
  Weight: 74.83 kg

DRUGS (1)
  1. LOTRIMIN ULTRA [Suspect]
     Indication: TINEA CRURIS
     Dosage: UNK, BID
     Route: 061
     Dates: start: 20131208

REACTIONS (1)
  - Drug effect decreased [Unknown]
